FAERS Safety Report 17375826 (Version 1)
Quarter: 2020Q1

REPORT INFORMATION
  Report Type: Report from Study
  Country: AU (occurrence: AU)
  Receive Date: 20200206
  Receipt Date: 20200206
  Transmission Date: 20200409
  Serious: Yes (Other)
  Sender: FDA-Public Use
  Company Number: AU-ASTRAZENECA-2019SF64022

PATIENT
  Age: 674 Month
  Sex: Female

DRUGS (6)
  1. FASENRA [Suspect]
     Active Substance: BENRALIZUMAB
     Indication: ASTHMA
     Dosage: 30MG/ML EVERY EIGHT WEEKS
     Route: 058
  2. VENTOLIN [Concomitant]
     Active Substance: ALBUTEROL SULFATE
     Indication: ASTHMA
     Dosage: 2-3 TIMES PER DAY, STARTED 30 YEARS AGO
  3. ATROVENT [Concomitant]
     Active Substance: IPRATROPIUM BROMIDE
     Indication: ASTHMA
     Dosage: 2-3 TIMES PER DAY
     Dates: start: 20191008
  4. SYMBICORT [Concomitant]
     Active Substance: BUDESONIDE\FORMOTEROL FUMARATE DIHYDRATE
     Indication: ASTHMA
     Dosage: 2-3 TIMES PER DAY
     Dates: start: 2017
  5. FASENRA [Suspect]
     Active Substance: BENRALIZUMAB
     Indication: ASTHMA
     Dosage: 30MG/ML EVERY EIGHT WEEKS
     Route: 058
     Dates: end: 20190916
  6. AZITHROMYCIN ANHYDROUS. [Suspect]
     Active Substance: AZITHROMYCIN ANHYDROUS
     Indication: ASTHMA
     Dosage: HALF TABLET 3 TIMES A WEEK
     Route: 048
     Dates: start: 2018, end: 201912

REACTIONS (11)
  - Autoimmune disorder [Unknown]
  - Asthma [Unknown]
  - Disease progression [Unknown]
  - Paraesthesia oral [Not Recovered/Not Resolved]
  - Dry skin [Recovering/Resolving]
  - Hot flush [Not Recovered/Not Resolved]
  - Glossodynia [Not Recovered/Not Resolved]
  - Candida infection [Not Recovered/Not Resolved]
  - Lower respiratory tract infection [Unknown]
  - Foot fracture [Unknown]
  - Dry mouth [Not Recovered/Not Resolved]

NARRATIVE: CASE EVENT DATE: 201708
